FAERS Safety Report 9323848 (Version 3)
Quarter: 2013Q4

REPORT INFORMATION
  Report Type: Spontaneous
  Country: JP (occurrence: JP)
  Receive Date: 20130603
  Receipt Date: 20131223
  Transmission Date: 20140711
  Serious: Yes (Hospitalization, Other)
  Sender: FDA-Public Use
  Company Number: JP-PFIZER INC-2013166328

PATIENT
  Age: 77 Year
  Sex: Male
  Weight: 54 kg

DRUGS (13)
  1. LYRICA [Suspect]
     Dosage: 75 MG, 2X/DAY
     Route: 048
     Dates: start: 20130204, end: 20130310
  2. LYRICA [Suspect]
     Dosage: 225 MG, DAILY
     Route: 048
     Dates: start: 20130311, end: 20130408
  3. LYRICA [Suspect]
     Dosage: 75 MG, 2X/DAY
     Route: 048
     Dates: start: 20130513, end: 20130531
  4. BAYASPIRIN [Concomitant]
     Dosage: 100 MG, 1X/DAY
     Route: 048
  5. RENIVACE [Concomitant]
     Dosage: 5 MG, 1X/DAY
     Route: 048
  6. CRESTOR [Concomitant]
     Dosage: 2.5 MG, 1X/DAY
     Route: 048
     Dates: end: 20130527
  7. ROHYPNOL [Concomitant]
     Dosage: 1 MG, 1X/DAY
     Route: 048
  8. BI SIFROL [Concomitant]
     Dosage: 3 MG, 1X/DAY
     Route: 048
     Dates: end: 20130527
  9. TAKEPRON OD [Concomitant]
     Dosage: 15 MG, 1X/DAY
     Route: 048
  10. SHAKUYAKU-KANZO-TO [Concomitant]
     Indication: HYPOAESTHESIA
     Dosage: 2.5 G, 1X/DAY
     Route: 048
     Dates: start: 20130513, end: 20130531
  11. CYMBALTA [Concomitant]
     Dosage: 30 MG, 1X/DAY
     Dates: start: 20130304
  12. CYMBALTA [Concomitant]
     Dosage: 20 MG, 1X/DAY
     Route: 048
     Dates: start: 20130603, end: 20130609
  13. CYMBALTA [Concomitant]
     Dosage: 20 MG, 2X/DAY
     Route: 048
     Dates: start: 20130610, end: 20130711

REACTIONS (3)
  - Pulmonary congestion [Recovered/Resolved]
  - Cardiac failure congestive [Unknown]
  - Hypoaesthesia [Unknown]
